FAERS Safety Report 23741502 (Version 1)
Quarter: 2024Q2

REPORT INFORMATION
  Report Type: Spontaneous
  Country: US (occurrence: US)
  Receive Date: 20240415
  Receipt Date: 20240415
  Transmission Date: 20240716
  Serious: Yes (Other)
  Sender: FDA-Public Use
  Company Number: US-HORIZON THERAPEUTICS-HZN-2024-004195

PATIENT

DRUGS (18)
  1. TEPEZZA [Suspect]
     Active Substance: TEPROTUMUMAB-TRBW
     Indication: Endocrine ophthalmopathy
     Dosage: FIRST INFUSION
     Route: 042
  2. TEPEZZA [Suspect]
     Active Substance: TEPROTUMUMAB-TRBW
     Dosage: SECOND INFUSION
     Route: 042
  3. VITAMIN D2 [Concomitant]
     Active Substance: ERGOCALCIFEROL
  4. WELLBUTRIN XL [Concomitant]
     Active Substance: BUPROPION HYDROCHLORIDE
     Dosage: UNK, QD
  5. OMEPRAZOLE [Concomitant]
     Active Substance: OMEPRAZOLE
  6. ALENDRONATE [Concomitant]
     Active Substance: ALENDRONATE SODIUM
  7. ASCORBIC ACID\IRON [Concomitant]
     Active Substance: ASCORBIC ACID\IRON
     Route: 048
  8. METHIMAZOLE [Concomitant]
     Active Substance: METHIMAZOLE
  9. SELENIUM [Concomitant]
     Active Substance: SELENIUM
     Route: 048
  10. CRANBERRY [Concomitant]
     Active Substance: CRANBERRY
  11. VITAMINS [Concomitant]
     Active Substance: VITAMINS
     Route: 048
  12. SACCHAROMYCES CEREVISIAE [Concomitant]
     Active Substance: SACCHAROMYCES CEREVISIAE
  13. TRAMADOL [Concomitant]
     Active Substance: TRAMADOL\TRAMADOL HYDROCHLORIDE
  14. ACETAMINOPHEN [Concomitant]
     Active Substance: ACETAMINOPHEN
  15. MAGNESIUM [Concomitant]
     Active Substance: MAGNESIUM
     Route: 048
  16. HERBALS [Concomitant]
     Active Substance: HERBALS
     Route: 048
  17. AMLODIPINE [Concomitant]
     Active Substance: AMLODIPINE BESYLATE
  18. PRASTERONE [Concomitant]
     Active Substance: PRASTERONE

REACTIONS (2)
  - Iridocyclitis [Unknown]
  - Audiogram abnormal [Unknown]
